FAERS Safety Report 22248807 (Version 1)
Quarter: 2023Q2

REPORT INFORMATION
  Report Type: Spontaneous
  Country: CA (occurrence: CA)
  Receive Date: 20230425
  Receipt Date: 20230425
  Transmission Date: 20230721
  Serious: Yes (Hospitalization)
  Sender: FDA-Public Use
  Company Number: CA-ORGANON-O2304CAN002277

PATIENT
  Age: 87 Year
  Sex: Female
  Weight: 59 kg

DRUGS (1)
  1. FOSAMAX [Suspect]
     Active Substance: ALENDRONATE SODIUM
     Dosage: 70 MILLIGRAM, 1 EVERY 7 DAYS
     Route: 048

REACTIONS (2)
  - Femur fracture [Recovered/Resolved]
  - Open reduction of fracture [Recovered/Resolved]
